FAERS Safety Report 10013871 (Version 1)
Quarter: 2014Q1

REPORT INFORMATION
  Report Type: Spontaneous
  Country: US (occurrence: US)
  Receive Date: 20140316
  Receipt Date: 20140316
  Transmission Date: 20141002
  Serious: Yes (Hospitalization)
  Sender: FDA-Public Use
  Company Number: US-MYLANLABS-2014S1004953

PATIENT
  Age: 61 Year
  Sex: Male

DRUGS (1)
  1. WARFARIN [Suspect]
     Route: 048

REACTIONS (7)
  - Haematuria [Unknown]
  - Lower gastrointestinal haemorrhage [Unknown]
  - Epistaxis [Unknown]
  - Prothrombin time prolonged [Recovered/Resolved]
  - International normalised ratio increased [Recovered/Resolved]
  - Drug dispensing error [Unknown]
  - Abdominal pain [Unknown]
